FAERS Safety Report 6411830-9 (Version None)
Quarter: 2009Q4

REPORT INFORMATION
  Report Type: 
  Country: None (occurrence: None)
  Receive Date: 20091023
  Receipt Date: 20091014
  Transmission Date: 20100525
  Serious: Yes (Other)
  Sender: FDA-Public Use
  Company Number: US-JNJFOC-20091005206

PATIENT
  Sex: Female
  Weight: 77.11 kg

DRUGS (14)
  1. REMICADE [Suspect]
     Indication: COLITIS ULCERATIVE
     Route: 042
     Dates: start: 20071201
  2. COLAZAL [Concomitant]
     Dosage: 3 CAPS TID
  3. MERCAPTOPURINE [Concomitant]
  4. METOPROLOL [Concomitant]
     Indication: HEART RATE DECREASED
  5. FOLIC ACID [Concomitant]
  6. PREMARIN [Concomitant]
     Dosage: 0.025
  7. SPIRONOLACTONE [Concomitant]
     Indication: ALOPECIA
  8. CALCIUM [Concomitant]
  9. VITAMIN D [Concomitant]
  10. LOVAZA [Concomitant]
  11. VITAMIN B3 [Concomitant]
  12. GLUCOSAMINE [Concomitant]
  13. CENTRUM SILVER [Concomitant]
  14. ASCORBIC ACID [Concomitant]

REACTIONS (2)
  - ERYTHEMA [None]
  - TINNITUS [None]
